FAERS Safety Report 13228040 (Version 2)
Quarter: 2017Q1

REPORT INFORMATION
  Report Type: Spontaneous
  Country: US (occurrence: US)
  Receive Date: 20170213
  Receipt Date: 20170306
  Transmission Date: 20170428
  Serious: Yes (Other)
  Sender: FDA-Public Use
  Company Number: US-TAIHO ONCOLOGY INC-EU-2016-01746

PATIENT
  Age: 68 Year
  Sex: Female

DRUGS (12)
  1. LONSURF [Suspect]
     Active Substance: TIPIRACIL HYDROCHLORIDE\TRIFLURIDINE
     Indication: RECTAL CANCER
     Dosage: UNKNOWN CYCLE
     Route: 048
     Dates: end: 2017
  2. ACETYLSALICYLIC ACID [Concomitant]
     Active Substance: ASPIRIN
     Dosage: NI
  3. MAGNESIUM [Concomitant]
     Active Substance: MAGNESIUM
     Dosage: NI
  4. ZINC. [Concomitant]
     Active Substance: ZINC
     Dosage: NI
  5. GLIPIZIDE. [Concomitant]
     Active Substance: GLIPIZIDE
     Dosage: NI
  6. XARELTO [Concomitant]
     Active Substance: RIVAROXABAN
     Dosage: NI
  7. LONSURF [Suspect]
     Active Substance: TIPIRACIL HYDROCHLORIDE\TRIFLURIDINE
     Indication: RECTAL CANCER
     Route: 048
     Dates: start: 20160528
  8. CARVEDILOL. [Concomitant]
     Active Substance: CARVEDILOL
     Dosage: NI
  9. LISINOPRIL. [Concomitant]
     Active Substance: LISINOPRIL
     Dosage: NI
  10. IBUPROFEN. [Concomitant]
     Active Substance: IBUPROFEN
     Dosage: NI
  11. LIPITOR [Concomitant]
     Active Substance: ATORVASTATIN CALCIUM
     Dosage: NI
  12. FUROSEMIDE. [Concomitant]
     Active Substance: FUROSEMIDE
     Dosage: NI

REACTIONS (9)
  - Muscle strain [Unknown]
  - Myalgia [Unknown]
  - Diarrhoea [Not Recovered/Not Resolved]
  - White blood cell count decreased [Unknown]
  - Muscle fatigue [Not Recovered/Not Resolved]
  - Cardiac pacemaker insertion [Recovered/Resolved]
  - Abdominal discomfort [Unknown]
  - Cheilitis [Not Recovered/Not Resolved]
  - Asthenia [Unknown]

NARRATIVE: CASE EVENT DATE: 2016
